FAERS Safety Report 4262945-5 (Version None)
Quarter: 2004Q1

REPORT INFORMATION
  Report Type: 
  Country: None (occurrence: None)
  Receive Date: 20040102
  Receipt Date: 20040102
  Transmission Date: 20041129
  Serious: Yes (Hospitalization)
  Sender: FDA-Public Use
  Company Number: None

PATIENT
  Age: 69 Year
  Sex: Female

DRUGS (13)
  1. AGGRENOX [Suspect]
     Indication: PROPHYLAXIS
     Dosage: 1 TAB PO QD
     Route: 048
     Dates: start: 20031219, end: 20031220
  2. AGGRENOX [Suspect]
     Indication: TRANSIENT ISCHAEMIC ATTACK
     Dosage: 1 TAB PO QD
     Route: 048
     Dates: start: 20031219, end: 20031220
  3. TOPROL-XL [Concomitant]
  4. PREMPOR [Concomitant]
  5. PRAVACHOL [Concomitant]
  6. AVALIDO [Concomitant]
  7. AMARYL [Concomitant]
  8. AVANDIA [Concomitant]
  9. ANEMAGEN [Concomitant]
  10. CALCIUM [Concomitant]
  11. ALPHAGAN [Concomitant]
  12. LOTEMEX [Concomitant]
  13. TRUSOPT [Concomitant]

REACTIONS (3)
  - HEADACHE [None]
  - HEART RATE INCREASED [None]
  - RESPIRATORY RATE INCREASED [None]
